FAERS Safety Report 9436447 (Version 3)
Quarter: 2013Q4

REPORT INFORMATION
  Report Type: Spontaneous
  Country: JP (occurrence: JP)
  Receive Date: 20130802
  Receipt Date: 20131130
  Transmission Date: 20140711
  Serious: Yes (Other)
  Sender: FDA-Public Use
  Company Number: JP-AMGEN-JPNSP2013054063

PATIENT
  Age: 70 Year
  Sex: Female

DRUGS (1)
  1. RANMARK [Suspect]
     Indication: BREAST CANCER
     Dosage: 10 TIMES
     Route: 058
     Dates: start: 20120524, end: 20130411

REACTIONS (3)
  - Gingival swelling [Recovered/Resolved]
  - Periodontal disease [Not Recovered/Not Resolved]
  - Gingivitis [Not Recovered/Not Resolved]
